FAERS Safety Report 5237990-3 (Version None)
Quarter: 2007Q1

REPORT INFORMATION
  Report Type: 
  Country: None (occurrence: None)
  Receive Date: 20070214
  Receipt Date: 20070202
  Transmission Date: 20070707
  Serious: Yes (Hospitalization, Other)
  Sender: FDA-Public Use
  Company Number: PL-PFIZER INC-2006089320

PATIENT
  Sex: Female
  Weight: 54 kg

DRUGS (5)
  1. SU-011,248 [Suspect]
     Indication: GASTROINTESTINAL STROMAL TUMOUR
     Route: 048
  2. SU-011,248 [Suspect]
     Route: 048
  3. FUROSEMIDE [Concomitant]
     Route: 048
     Dates: start: 20060619, end: 20060717
  4. SPIRONOLACTONE [Concomitant]
     Route: 048
     Dates: start: 20060619, end: 20060717
  5. ENALAPRIL MALEATE [Concomitant]
     Route: 048
     Dates: start: 20060310

REACTIONS (1)
  - ASCITES [None]
